FAERS Safety Report 7138758-3 (Version None)
Quarter: 2010Q4

REPORT INFORMATION
  Report Type: 
  Country: None (occurrence: None)
  Receive Date: 20101206
  Receipt Date: 20101123
  Transmission Date: 20110411
  Serious: Yes (Hospitalization, Other)
  Sender: FDA-Public Use
  Company Number: CA-ELI_LILLY_AND_COMPANY-CA201010005329

PATIENT
  Sex: Male

DRUGS (3)
  1. HUMALOG [Suspect]
     Indication: DIABETES MELLITUS
     Dosage: UNK, AS NEEDED
     Dates: end: 20100101
  2. HUMALOG [Suspect]
     Dosage: UNK, AS NEEDED
     Dates: start: 20100101
  3. LANTUS [Concomitant]
     Indication: DIABETES MELLITUS

REACTIONS (13)
  - BLINDNESS UNILATERAL [None]
  - BLOOD GLUCOSE ABNORMAL [None]
  - CATARACT [None]
  - EYE HAEMORRHAGE [None]
  - EYE PAIN [None]
  - FLUID RETENTION [None]
  - HYPOGLYCAEMIC UNCONSCIOUSNESS [None]
  - LIMB INJURY [None]
  - LOWER LIMB FRACTURE [None]
  - RENAL DISORDER [None]
  - VERTIGO [None]
  - VISUAL IMPAIRMENT [None]
  - WEIGHT INCREASED [None]
